FAERS Safety Report 23970587 (Version 3)
Quarter: 2024Q2

REPORT INFORMATION
  Report Type: Spontaneous
  Country: FR (occurrence: FR)
  Receive Date: 20240613
  Receipt Date: 20240617
  Transmission Date: 20240716
  Serious: No
  Sender: FDA-Public Use
  Company Number: FR-002147023-NVSC2024FR121799

PATIENT
  Age: 75 Year
  Sex: Female

DRUGS (2)
  1. INDACATEROL [Suspect]
     Active Substance: INDACATEROL
     Indication: Respiratory failure
     Dosage: 150 UG, QD
     Route: 065
  2. INDACATEROL [Suspect]
     Active Substance: INDACATEROL
     Dosage: 150 UG, QD
     Route: 065

REACTIONS (3)
  - Device issue [Unknown]
  - Incorrect dose administered by device [Unknown]
  - Off label use [Unknown]
